FAERS Safety Report 10407269 (Version 1)
Quarter: 2014Q1

REPORT INFORMATION
  Report Type: Spontaneous
  Country: US (occurrence: None)
  Receive Date: 20140228
  Receipt Date: 20140228
  Transmission Date: 20141002
  Serious: No
  Sender: FDA-Public Use
  Company Number: 225068LEO

PATIENT
  Age: 47 Year
  Sex: Female

DRUGS (1)
  1. PICATO (INGENOL MEBUTATE) (0.015 %, GEL) [Suspect]
     Indication: ACTINIC KERATOSIS
     Dosage: 1 D, TOPICAL
     Route: 061
     Dates: start: 20131124

REACTIONS (3)
  - Application site erosion [None]
  - Application site erythema [None]
  - Incorrect drug administration duration [None]
